FAERS Safety Report 5856529-2 (Version None)
Quarter: 2008Q3

REPORT INFORMATION
  Report Type: 
  Country: None (occurrence: None)
  Receive Date: 20080822
  Receipt Date: 20080822
  Transmission Date: 20090109
  Serious: No
  Sender: FDA-Public Use
  Company Number: None

PATIENT
  Sex: Female
  Weight: 43.0917 kg

DRUGS (2)
  1. LYRICA [Suspect]
     Indication: BLADDER PAIN
     Dosage: WAS 150 MG TWICE DAILY MOUTH THEN BEGAN 75 MG TWICE DAILY MOUTH
     Route: 048
     Dates: start: 20080301, end: 20080807
  2. LYRICA [Suspect]
     Indication: CYSTITIS INTERSTITIAL
     Dosage: WAS 150 MG TWICE DAILY MOUTH THEN BEGAN 75 MG TWICE DAILY MOUTH
     Route: 048
     Dates: start: 20080301, end: 20080807

REACTIONS (5)
  - DISTURBANCE IN ATTENTION [None]
  - IRRITABILITY [None]
  - NERVOUS SYSTEM DISORDER [None]
  - THINKING ABNORMAL [None]
  - WEIGHT INCREASED [None]
